FAERS Safety Report 10614418 (Version 3)
Quarter: 2020Q2

REPORT INFORMATION
  Report Type: Spontaneous
  Country: CA (occurrence: CA)
  Receive Date: 20141129
  Receipt Date: 20200512
  Transmission Date: 20200713
  Serious: Yes (Hospitalization, Other)
  Sender: FDA-Public Use
  Company Number: CA-AUROBINDO-AUR-APL-2014-12565

PATIENT
  Age: 45 Year
  Sex: Female

DRUGS (8)
  1. CIPROFLOXACIN FILM-COATED TABLETS [Suspect]
     Active Substance: CIPROFLOXACIN
     Indication: ESCHERICHIA URINARY TRACT INFECTION
  2. NITROFURANTOIN. [Suspect]
     Active Substance: NITROFURANTOIN
     Indication: URINARY TRACT INFECTION
     Dosage: UNK
     Route: 065
  3. NITROFURANTOIN. [Suspect]
     Active Substance: NITROFURANTOIN
     Indication: ESCHERICHIA INFECTION
  4. CIPROFLOXACIN FILM-COATED TABLETS [Suspect]
     Active Substance: CIPROFLOXACIN
     Indication: URINARY TRACT INFECTION
     Dosage: UNK
     Route: 065
  5. FURADANTIN [Suspect]
     Active Substance: NITROFURANTOIN
     Indication: ESCHERICHIA URINARY TRACT INFECTION
  6. ACETAMINOPHEN. [Concomitant]
     Active Substance: ACETAMINOPHEN
     Indication: ARTHRALGIA
     Dosage: UNK
     Route: 065
  7. NITROFURANTOIN. [Suspect]
     Active Substance: NITROFURANTOIN
     Indication: URINARY TRACT INFECTION
     Dosage: UNK
     Route: 065
  8. CIPROFLOXACIN FILM-COATED TABLETS [Suspect]
     Active Substance: CIPROFLOXACIN
     Indication: ESCHERICHIA INFECTION

REACTIONS (25)
  - Neutrophilia [Recovered/Resolved]
  - Erythema nodosum [Recovered/Resolved]
  - Nodule [Recovered/Resolved]
  - Erythema [Recovered/Resolved]
  - Lacrimation increased [Recovering/Resolving]
  - Pain of skin [Recovering/Resolving]
  - Skin oedema [Recovering/Resolving]
  - Leukocytosis [Recovered/Resolved]
  - Acute febrile neutrophilic dermatosis [Recovered/Resolved]
  - Panniculitis [Recovered/Resolved]
  - Headache [Recovered/Resolved]
  - Red blood cell sedimentation rate increased [Recovered/Resolved]
  - Neutrophilic dermatosis [Recovering/Resolving]
  - Episcleritis [Recovered/Resolved]
  - Conjunctival hyperaemia [Recovered/Resolved]
  - C-reactive protein increased [Recovered/Resolved]
  - Neurological symptom [Recovered/Resolved]
  - Oral pustule [Recovering/Resolving]
  - Arthralgia [Recovered/Resolved]
  - Rash [Recovered/Resolved]
  - Pustule [Recovered/Resolved]
  - Skin plaque [Recovered/Resolved]
  - Dry eye [Recovering/Resolving]
  - Oedema [Recovered/Resolved]
  - Skin mass [Recovering/Resolving]
